FAERS Safety Report 9757556 (Version 2)
Quarter: 2013Q4

REPORT INFORMATION
  Report Type: Spontaneous
  Country: US (occurrence: US)
  Receive Date: 20131216
  Receipt Date: 20131216
  Transmission Date: 20140711
  Serious: Yes (Other)
  Sender: FDA-Public Use
  Company Number: US-BEH-2013037349

PATIENT
  Age: 45 Year
  Sex: Female
  Weight: 101 kg

DRUGS (18)
  1. HIZENTRA [Suspect]
     Dosage: 2 GM 10 ML VIAL; INFUSE 1-2 HOURS
     Route: 058
  2. HIZENTRA [Suspect]
     Indication: IMMUNODEFICIENCY COMMON VARIABLE
     Dosage: 4 GM 20 ML VIAL; INFUSE 1-2 HOURS
     Route: 058
  3. HIZENTRA [Suspect]
     Dosage: 70 ML; 6 SITES OVER 1-2 HOURS
     Route: 058
  4. DIPHENHYDRAMINE [Concomitant]
     Indication: PREMEDICATION
  5. LIDOCAINE PRILOCAINE [Concomitant]
  6. EPIPEN [Concomitant]
  7. ATIVAN [Concomitant]
  8. MULTIVITAMIN [Concomitant]
  9. CYMBALTA [Concomitant]
  10. KLONOPIN [Concomitant]
  11. JANUVIA [Concomitant]
  12. LIPITOR [Concomitant]
  13. METFORMIN [Concomitant]
  14. MOTRIN [Concomitant]
  15. OMEPRAZOLE DR [Concomitant]
  16. NYSTATIN [Concomitant]
  17. DIFLUCAN [Concomitant]
  18. LEVAQUIN [Concomitant]

REACTIONS (6)
  - Hepatitis B [Unknown]
  - Fungal infection [Unknown]
  - Sinusitis [Unknown]
  - Refusal of treatment by patient [Unknown]
  - Fatigue [Unknown]
  - Contusion [Unknown]
